FAERS Safety Report 13444432 (Version 2)
Quarter: 2017Q2

REPORT INFORMATION
  Report Type: Report from Study
  Country: None (occurrence: US)
  Receive Date: 20170414
  Receipt Date: 20170618
  Transmission Date: 20170830
  Serious: Yes (Other)
  Sender: FDA-Public Use
  Company Number: US-ABBVIE-17K-163-1941206-00

PATIENT
  Age: 40 Year
  Sex: Male

DRUGS (1)
  1. HUMIRA [Suspect]
     Active Substance: ADALIMUMAB
     Indication: CROHN^S DISEASE
     Route: 058
     Dates: start: 201507, end: 201612

REACTIONS (5)
  - Diarrhoea [Unknown]
  - Sinusitis [Recovering/Resolving]
  - Ear infection [Recovering/Resolving]
  - Nasal septum deviation [Recovering/Resolving]
  - Gastric disorder [Unknown]

NARRATIVE: CASE EVENT DATE: 201701
